FAERS Safety Report 25372285 (Version 1)
Quarter: 2025Q2

REPORT INFORMATION
  Report Type: Spontaneous
  Country: NL (occurrence: NL)
  Receive Date: 20250529
  Receipt Date: 20250529
  Transmission Date: 20250717
  Serious: Yes (Other)
  Sender: CELLTRION
  Company Number: NL-ABBVIE-6011718

PATIENT

DRUGS (2)
  1. ADALIMUMAB [Suspect]
     Active Substance: ADALIMUMAB
     Indication: Uveitis
     Route: 058
  2. AZATHIOPRINE [Suspect]
     Active Substance: AZATHIOPRINE
     Indication: Uveitis
     Route: 065

REACTIONS (3)
  - Cholestasis of pregnancy [Not Recovered/Not Resolved]
  - Bile acids abnormal [Not Recovered/Not Resolved]
  - Maternal exposure during pregnancy [Unknown]
